FAERS Safety Report 6206083-0 (Version None)
Quarter: 2009Q2

REPORT INFORMATION
  Report Type: 
  Country: None (occurrence: None)
  Receive Date: 20090528
  Receipt Date: 20090525
  Transmission Date: 20091009
  Serious: Yes (Hospitalization, Other)
  Sender: FDA-Public Use
  Company Number: AU-BRISTOL-MYERS SQUIBB COMPANY-14636823

PATIENT
  Age: 57 Year
  Sex: Male

DRUGS (5)
  1. IRBESARTAN [Suspect]
     Route: 048
     Dates: start: 20070130, end: 20070131
  2. FUROSEMIDE [Interacting]
     Dosage: TABLET FORM
     Route: 048
     Dates: start: 20070130, end: 20070131
  3. SPIRONOLACTONE [Interacting]
     Dates: start: 20070130, end: 20070131
  4. ASPIRIN [Interacting]
     Dosage: TABLET FORM
     Route: 048
     Dates: start: 20070130, end: 20070131
  5. TRANDOLAPRIL [Interacting]
     Dosage: TABLET FORM
     Route: 048
     Dates: start: 20070130, end: 20070131

REACTIONS (3)
  - DEHYDRATION [None]
  - DRUG INTERACTION [None]
  - RENAL FAILURE ACUTE [None]
